FAERS Safety Report 4349013-9 (Version None)
Quarter: 2004Q2

REPORT INFORMATION
  Report Type: 
  Country: None (occurrence: None)
  Receive Date: 20040427
  Receipt Date: 20040427
  Transmission Date: 20050107
  Serious: Yes (Life-Threatening)
  Sender: FDA-Public Use
  Company Number: None

PATIENT
  Age: 14 Year
  Sex: Male

DRUGS (1)
  1. NEURONTIN [Suspect]
     Indication: CONVULSION
     Dosage: 400 MG ONCE DAILY
     Dates: start: 19970829

REACTIONS (3)
  - ABNORMAL BEHAVIOUR [None]
  - AMNESIA [None]
  - EDUCATIONAL PROBLEM [None]
